FAERS Safety Report 7474501-6 (Version None)
Quarter: 2011Q2

REPORT INFORMATION
  Report Type: 
  Country: None (occurrence: None)
  Receive Date: 20110512
  Receipt Date: 20110503
  Transmission Date: 20111010
  Serious: Yes (Death, Hospitalization)
  Sender: FDA-Public Use
  Company Number: US-BIOGENIDEC-2009BI000257

PATIENT
  Age: 60 Year
  Sex: Female
  Weight: 94 kg

DRUGS (1)
  1. TYSABRI [Suspect]
     Indication: MULTIPLE SCLEROSIS
     Route: 042
     Dates: start: 20080930, end: 20081125

REACTIONS (5)
  - BLOOD GLUCOSE INCREASED [None]
  - SUBARACHNOID HAEMORRHAGE [None]
  - CARDIAC ARREST [None]
  - DEEP VEIN THROMBOSIS [None]
  - BRAIN STEM HAEMORRHAGE [None]
